FAERS Safety Report 8415911-X (Version None)
Quarter: 2012Q2

REPORT INFORMATION
  Report Type: 
  Country: None (occurrence: None)
  Receive Date: 20120606
  Receipt Date: 20120531
  Transmission Date: 20120825
  Serious: Yes (Other)
  Sender: FDA-Public Use
  Company Number: JP-SANOFI-AVENTIS-2012SA039631

PATIENT

DRUGS (2)
  1. LANTUS [Suspect]
     Indication: SUICIDE ATTEMPT
     Dosage: DOSE:600 UNIT(S)
     Route: 058
  2. SOLOSTAR [Suspect]
     Indication: DEVICE THERAPY

REACTIONS (1)
  - INTENTIONAL OVERDOSE [None]
